FAERS Safety Report 10497204 (Version 2)
Quarter: 2014Q4

REPORT INFORMATION
  Report Type: Spontaneous
  Country: US (occurrence: US)
  Receive Date: 20141006
  Receipt Date: 20141114
  Transmission Date: 20150528
  Serious: Yes (Death)
  Sender: FDA-Public Use
  Company Number: US-CELGENE-USA-2014094805

PATIENT
  Sex: Male

DRUGS (9)
  1. METOPROLOL SUCCINATE. [Concomitant]
     Active Substance: METOPROLOL SUCCINATE
     Route: 065
  2. LEVAQUIN [Concomitant]
     Active Substance: LEVOFLOXACIN
     Route: 065
  3. ONDANSETRON [Concomitant]
     Active Substance: ONDANSETRON
     Route: 065
  4. HYDROCODONE ACETAMINOPHEN [Concomitant]
     Active Substance: ACETAMINOPHEN\HYDROCODONE BITARTRATE
     Route: 065
  5. REVLIMID [Suspect]
     Active Substance: LENALIDOMIDE
     Indication: ACUTE MYELOID LEUKAEMIA
     Dosage: 25 MILLIGRAM
     Route: 048
     Dates: start: 20140804, end: 20140825
  6. NORCO [Concomitant]
     Active Substance: ACETAMINOPHEN\HYDROCODONE BITARTRATE
     Route: 065
  7. IBUPROFEN. [Concomitant]
     Active Substance: IBUPROFEN
     Route: 065
  8. PREVACID [Concomitant]
     Active Substance: LANSOPRAZOLE
     Route: 065
  9. DAPSONE. [Concomitant]
     Active Substance: DAPSONE
     Route: 065

REACTIONS (2)
  - Non-Hodgkin^s lymphoma [Fatal]
  - Acute myeloid leukaemia [Fatal]
